FAERS Safety Report 8298163-3 (Version None)
Quarter: 2012Q2

REPORT INFORMATION
  Report Type: 
  Country: None (occurrence: None)
  Receive Date: 20120419
  Receipt Date: 20120308
  Transmission Date: 20120825
  Serious: Yes (Life-Threatening, Hospitalization)
  Sender: FDA-Public Use
  Company Number: US-BRISTOL-MYERS SQUIBB COMPANY-16168205

PATIENT
  Age: 68 Year
  Sex: Male

DRUGS (2)
  1. PREDNISONE TAB [Concomitant]
     Route: 048
     Dates: start: 20110908
  2. YERVOY [Suspect]
     Indication: METASTATIC MALIGNANT MELANOMA
     Dosage: RECEIVED 2-3 DOSES
     Route: 042
     Dates: start: 20110825

REACTIONS (2)
  - ENTEROCOLITIS [None]
  - LARGE INTESTINE PERFORATION [None]
